FAERS Safety Report 19366231 (Version 1)
Quarter: 2021Q2

REPORT INFORMATION
  Report Type: Spontaneous
  Country: CN (occurrence: CN)
  Receive Date: 20210602
  Receipt Date: 20210602
  Transmission Date: 20210717
  Serious: Yes (Hospitalization)
  Sender: FDA-Public Use
  Company Number: CN-ROCHE-2841863

PATIENT
  Age: 75 Year
  Sex: Male
  Weight: 59.5 kg

DRUGS (4)
  1. TECENTRIQ [Suspect]
     Active Substance: ATEZOLIZUMAB
     Indication: SMALL CELL LUNG CANCER RECURRENT
     Route: 041
     Dates: start: 20201124, end: 20210522
  2. PACLITAXEL ALBUMIN [Concomitant]
     Active Substance: PACLITAXEL
     Dates: start: 20210127
  3. CARBOPLATIN. [Concomitant]
     Active Substance: CARBOPLATIN
     Indication: SMALL CELL LUNG CANCER RECURRENT
     Dates: start: 20201124
  4. PACLITAXEL ALBUMIN [Concomitant]
     Active Substance: PACLITAXEL
     Indication: SMALL CELL LUNG CANCER RECURRENT
     Dates: start: 20201124

REACTIONS (1)
  - Myelosuppression [Recovering/Resolving]
